FAERS Safety Report 25107407 (Version 1)
Quarter: 2025Q1

REPORT INFORMATION
  Report Type: Spontaneous
  Country: US (occurrence: US)
  Receive Date: 20250321
  Receipt Date: 20250321
  Transmission Date: 20250409
  Serious: No
  Sender: ABBVIE
  Company Number: US-ABBVIE-6189378

PATIENT
  Age: 16 Year
  Sex: Male
  Weight: 91 kg

DRUGS (5)
  1. VRAYLAR [Suspect]
     Active Substance: CARIPRAZINE
     Indication: Bipolar disorder
     Dosage: FORM STRENGTH: 3?FORM STRENGTH UNITS: MILLIGRAM?STOP DATE TEXT: PROBABLY ABOUT A MONTH ONLY.
     Route: 048
     Dates: start: 202105
  2. VRAYLAR [Suspect]
     Active Substance: CARIPRAZINE
     Indication: Bipolar disorder
     Dosage: FORM STRENGTH: 4.5?FORM STRENGTH UNITS: MILLIGRAM
     Route: 048
     Dates: start: 2023
  3. VRAYLAR [Suspect]
     Active Substance: CARIPRAZINE
     Indication: Bipolar disorder
     Dosage: FORM STRENGTH=1.5? FORM STRENGTH UNITS: MILLIGRAM? STOP DATE TEXT: MAYBE FOR 2 WEEKS ONLY
     Route: 048
     Dates: start: 202105
  4. VRAYLAR [Suspect]
     Active Substance: CARIPRAZINE
     Indication: Bipolar disorder
     Dosage: FORM STRENGTH: 4.5?FORM STRENGTH UNITS: MILLIGRA?STOP DATE TEXT: SEE AED
     Route: 048
     Dates: start: 202106
  5. PANTOPRAZOLE [Concomitant]
     Active Substance: PANTOPRAZOLE
     Indication: Gastrooesophageal reflux disease

REACTIONS (2)
  - Bladder spasm [Recovered/Resolved]
  - Bladder spasm [Not Recovered/Not Resolved]

NARRATIVE: CASE EVENT DATE: 20210101
